FAERS Safety Report 9705212 (Version 1)
Quarter: 2013Q4

REPORT INFORMATION
  Report Type: Spontaneous
  Country: US (occurrence: US)
  Receive Date: 20131122
  Receipt Date: 20131122
  Transmission Date: 20140711
  Serious: Yes (Other)
  Sender: FDA-Public Use
  Company Number: US-SA-2013SA119326

PATIENT
  Age: 0 Day
  Sex: 0

DRUGS (1)
  1. CEREZYME [Suspect]
     Indication: GAUCHER^S DISEASE
     Route: 064

REACTIONS (5)
  - Hyperthermia malignant [Unknown]
  - Foetal exposure timing unspecified [Unknown]
  - Otitis media [Unknown]
  - Speech disorder developmental [Unknown]
  - Lacrimal structural disorder [Unknown]
